FAERS Safety Report 4835686-0 (Version None)
Quarter: 2005Q4

REPORT INFORMATION
  Report Type: 
  Country: None (occurrence: None)
  Receive Date: 20051123
  Receipt Date: 20050405
  Transmission Date: 20060501
  Serious: No
  Sender: FDA-Public Use
  Company Number: US-BRISTOL-MYERS SQUIBB COMPANY-12921953

PATIENT
  Sex: Female

DRUGS (1)
  1. PROLIXIN [Suspect]
     Dates: start: 20050331, end: 20050331

REACTIONS (1)
  - ACCIDENTAL EXPOSURE [None]
